FAERS Safety Report 8936704 (Version 3)
Quarter: 2013Q1

REPORT INFORMATION
  Report Type: Spontaneous
  Country: GB (occurrence: GB)
  Receive Date: 20121130
  Receipt Date: 20130215
  Transmission Date: 20140127
  Serious: Yes (Other)
  Sender: FDA-Public Use
  Company Number: GB-ROCHE-1162430

PATIENT
  Sex: Male
  Weight: 88.3 kg

DRUGS (4)
  1. OMALIZUMAB [Suspect]
     Indication: PRODUCT USED FOR UNKNOWN INDICATION
     Route: 058
     Dates: start: 20090921
  2. OMALIZUMAB [Suspect]
     Route: 058
     Dates: start: 20120921
  3. OMALIZUMAB [Suspect]
     Route: 065
     Dates: start: 20121116
  4. WARFARIN [Suspect]
     Indication: PRODUCT USED FOR UNKNOWN INDICATION
     Route: 065

REACTIONS (2)
  - Coagulopathy [Recovered/Resolved]
  - International normalised ratio abnormal [Recovered/Resolved]
